FAERS Safety Report 5963438-7 (Version None)
Quarter: 2008Q4

REPORT INFORMATION
  Report Type: 
  Country: None (occurrence: None)
  Receive Date: 20081121
  Receipt Date: 20081121
  Transmission Date: 20090506
  Serious: Yes (Hospitalization)
  Sender: FDA-Public Use
  Company Number: None

PATIENT
  Age: 77 Year
  Sex: Male
  Weight: 75 kg

DRUGS (7)
  1. LIDOCAINE [Suspect]
     Indication: VENTRICULAR TACHYCARDIA
     Dosage: 2 MG/MIN IV CI
     Route: 042
     Dates: start: 20080902
  2. LISINOPRIL [Concomitant]
  3. ISOSORBIDE [Concomitant]
  4. LASIX [Concomitant]
  5. SIMVASTATIN [Concomitant]
  6. ASPIRIN [Concomitant]
  7. METOPROLOL TARTRATE [Concomitant]

REACTIONS (3)
  - CONFUSIONAL STATE [None]
  - DRUG LEVEL INCREASED [None]
  - LETHARGY [None]
